FAERS Safety Report 16159191 (Version 1)
Quarter: 2019Q2

REPORT INFORMATION
  Report Type: Spontaneous
  Country: BR (occurrence: BR)
  Receive Date: 20190404
  Receipt Date: 20190404
  Transmission Date: 20190711
  Serious: Yes (Hospitalization, Other)
  Sender: FDA-Public Use
  Company Number: BR-GLAXOSMITHKLINE-BR2016GSK191693

PATIENT
  Sex: Female
  Weight: 69 kg

DRUGS (3)
  1. NORIPURUM [Concomitant]
     Active Substance: IRON POLYMALTOSE
     Indication: MINERAL SUPPLEMENTATION
     Dosage: UNK
  2. BENLYSTA [Suspect]
     Active Substance: BELIMUMAB
     Indication: SYSTEMIC LUPUS ERYTHEMATOSUS
     Dosage: UNK
     Dates: start: 20160815
  3. PREDNISONE. [Concomitant]
     Active Substance: PREDNISONE
     Indication: PRODUCT USED FOR UNKNOWN INDICATION
     Dosage: UNK , BID, 10MG

REACTIONS (10)
  - Product use issue [Recovered/Resolved]
  - Joint swelling [Unknown]
  - Product dose omission [Not Recovered/Not Resolved]
  - Swelling [Unknown]
  - Anaemia [Unknown]
  - Circumstance or information capable of leading to medication error [Unknown]
  - Inappropriate schedule of product administration [Unknown]
  - Erysipelas [Unknown]
  - Weight decreased [Unknown]
  - Immunodeficiency [Unknown]
